FAERS Safety Report 9807044 (Version 2)
Quarter: 2014Q1

REPORT INFORMATION
  Report Type: Report from Study
  Country: CA (occurrence: CA)
  Receive Date: 20140110
  Receipt Date: 20140110
  Transmission Date: 20141002
  Serious: Yes (Other)
  Sender: FDA-Public Use
  Company Number: CA-ROCHE-1298167

PATIENT
  Age: 50 Year
  Sex: Female
  Weight: 100 kg

DRUGS (6)
  1. ACTEMRA [Suspect]
     Indication: RHEUMATOID ARTHRITIS
     Route: 042
     Dates: start: 20110201
  2. ACTEMRA [Suspect]
     Route: 042
     Dates: start: 20121204
  3. METHOTREXATE [Concomitant]
  4. ARAVA [Concomitant]
  5. FOLIC ACID [Concomitant]
  6. PERCOCET [Concomitant]
     Dosage: AS NEEDED
     Route: 065

REACTIONS (3)
  - Ankle fracture [Unknown]
  - Weight increased [Not Recovered/Not Resolved]
  - Hypertension [Unknown]
